FAERS Safety Report 8946419 (Version 1)
Quarter: 2012Q4

REPORT INFORMATION
  Report Type: 
  Country: US (occurrence: US)
  Receive Date: 20121204
  Receipt Date: 20121204
  Transmission Date: 20130627
  Serious: No
  Sender: FDA-Public Use
  Company Number: US-AMGEN-USASP2012067960

PATIENT
  Age: 68 Year
  Sex: Male

DRUGS (4)
  1. ENBREL [Suspect]
     Indication: PSORIASIS
     Dosage: 50 mg, qwk
     Route: 058
     Dates: start: 20120716
  2. AMLODIPINE [Concomitant]
     Dosage: UNK
     Route: 048
  3. FINASTERIDE [Concomitant]
     Dosage: UNK
     Route: 048
  4. CUTIVATE [Concomitant]
     Dosage: UNK
     Route: 061

REACTIONS (1)
  - Dysgeusia [Recovering/Resolving]
